FAERS Safety Report 13930169 (Version 2)
Quarter: 2017Q3

REPORT INFORMATION
  Report Type: Report from Study
  Country: US (occurrence: US)
  Receive Date: 20170901
  Receipt Date: 20170905
  Transmission Date: 20171127
  Serious: Yes (Hospitalization, Other)
  Sender: FDA-Public Use
  Company Number: US-JNJFOC-20170814121

PATIENT
  Sex: Female

DRUGS (1)
  1. DARZALEX [Suspect]
     Active Substance: DARATUMUMAB
     Indication: PLASMA CELL MYELOMA
     Route: 042
     Dates: start: 20170727

REACTIONS (10)
  - Pain [Unknown]
  - Constipation [Unknown]
  - Disease progression [Not Recovered/Not Resolved]
  - Blood count abnormal [Unknown]
  - Feeling abnormal [Unknown]
  - Pyrexia [Recovered/Resolved]
  - Haemoglobin decreased [Unknown]
  - Dyspnoea [Unknown]
  - Nausea [Unknown]
  - Diarrhoea [Unknown]

NARRATIVE: CASE EVENT DATE: 2017
